FAERS Safety Report 9380878 (Version 1)
Quarter: 2013Q3

REPORT INFORMATION
  Report Type: Spontaneous
  Country: CA (occurrence: CA)
  Receive Date: 20130703
  Receipt Date: 20130703
  Transmission Date: 20140515
  Serious: Yes (Hospitalization)
  Sender: FDA-Public Use
  Company Number: CA-AMGEN-CANSP2012081129

PATIENT
  Age: 57 Year
  Sex: Male

DRUGS (7)
  1. ENBREL [Suspect]
     Indication: RHEUMATOID ARTHRITIS
     Dosage: 50 MG, UNK
     Route: 065
     Dates: start: 20121030, end: 20130212
  2. PLAQUENIL                          /00072602/ [Concomitant]
     Dosage: UNK
  3. PREDNISONE [Concomitant]
     Dosage: 10 MG, QD
  4. LYRICA [Concomitant]
     Dosage: 75 MG, QD
  5. SULFATRIM                          /00086101/ [Concomitant]
     Dosage: UNK 3 TABS, QWK
  6. VIT D [Concomitant]
     Dosage: 1000 UNIT, QWK
  7. RISEDRONATE [Concomitant]
     Dosage: 35 MG, QWK

REACTIONS (4)
  - Monoplegia [Recovering/Resolving]
  - Vasculitis [Recovering/Resolving]
  - Drug effect decreased [Recovering/Resolving]
  - Arthralgia [Not Recovered/Not Resolved]
